FAERS Safety Report 9491025 (Version 2)
Quarter: 2013Q3

REPORT INFORMATION
  Report Type: Spontaneous
  Country: US (occurrence: US)
  Receive Date: 20130830
  Receipt Date: 20130918
  Transmission Date: 20140515
  Serious: No
  Sender: FDA-Public Use
  Company Number: US-PFIZER INC-2013248994

PATIENT
  Age: 30 Year
  Sex: Male
  Weight: 76.19 kg

DRUGS (4)
  1. LYRICA [Suspect]
     Indication: SECONDARY PROGRESSIVE MULTIPLE SCLEROSIS
     Dosage: 75 MG, 2X/DAY
     Dates: start: 2008
  2. LYRICA [Suspect]
     Dosage: 75 MG, AS NEEDED
  3. LYRICA [Suspect]
     Dosage: 75 MG, UNK
  4. REBIF [Concomitant]
     Indication: SECONDARY PROGRESSIVE MULTIPLE SCLEROSIS
     Dosage: 44 UG, 3X/WEEK

REACTIONS (2)
  - Off label use [Unknown]
  - Drug tolerance increased [Unknown]
